FAERS Safety Report 9771175 (Version 2)
Quarter: 2014Q1

REPORT INFORMATION
  Report Type: Spontaneous
  Country: US (occurrence: US)
  Receive Date: 20131218
  Receipt Date: 20140213
  Transmission Date: 20141002
  Serious: Yes (Hospitalization)
  Sender: FDA-Public Use
  Company Number: US-B.I. PHARMACEUTICALS,INC./RIDGEFIELD-2013-BI-41786BP

PATIENT
  Sex: Male
  Weight: 81.65 kg

DRUGS (8)
  1. PRADAXA [Suspect]
     Indication: ATRIAL FIBRILLATION
     Dosage: 300 MG
     Dates: start: 20110105, end: 20110412
  2. ACETAMINOPHEN [Concomitant]
     Route: 048
  3. ALBUTEROL [Concomitant]
     Route: 055
  4. DIGOXIN [Concomitant]
     Dosage: 125 MCG
     Route: 048
  5. DOXAZOSIN [Concomitant]
     Dosage: 32 MG
     Route: 048
  6. LEVOTHYROXINE [Concomitant]
     Dosage: 400 MCG
  7. MULTIVITAMIN [Concomitant]
     Route: 048
  8. OLMESARTAN [Concomitant]
     Dosage: 20 MG
     Route: 048

REACTIONS (2)
  - Gastrointestinal haemorrhage [Unknown]
  - Haemorrhagic anaemia [Unknown]
